FAERS Safety Report 5169858-5 (Version None)
Quarter: 2006Q4

REPORT INFORMATION
  Report Type: 
  Country: None (occurrence: None)
  Receive Date: 20061212
  Receipt Date: 20060908
  Transmission Date: 20070319
  Serious: No
  Sender: FDA-Public Use
  Company Number: US-AMGEN-KDL192988

PATIENT
  Sex: Female

DRUGS (16)
  1. SENSIPAR [Suspect]
     Indication: HYPERPARATHYROIDISM SECONDARY
     Route: 048
     Dates: start: 20060912
  2. ARANESP [Concomitant]
     Route: 065
     Dates: start: 20050902
  3. FOSRENOL [Concomitant]
     Route: 065
     Dates: start: 20060911
  4. ALLOPURINOL [Concomitant]
     Route: 065
     Dates: start: 20050404
  5. AMBIEN [Concomitant]
     Route: 065
     Dates: start: 20060116
  6. BENTYL [Concomitant]
     Route: 065
     Dates: start: 20060207
  7. CARDURA [Concomitant]
     Route: 065
     Dates: start: 20060411
  8. COMPAZINE [Concomitant]
     Route: 065
     Dates: start: 20060306
  9. IRBESARTAN [Concomitant]
     Route: 065
     Dates: start: 20050110
  10. CALCITRIOL [Concomitant]
     Route: 065
     Dates: start: 20051212
  11. NEPHRO-CAPS [Concomitant]
     Route: 065
     Dates: start: 20010312
  12. NORVASC [Concomitant]
     Route: 065
     Dates: start: 20050404
  13. PANTOPRAZOLE SODIUM [Concomitant]
     Route: 065
     Dates: start: 20051221
  14. SIMVASTATIN [Concomitant]
     Route: 065
     Dates: start: 20050725
  15. KAYEXALATE [Concomitant]
     Route: 065
     Dates: start: 20060316
  16. ZETIA [Concomitant]
     Route: 065
     Dates: start: 20050725

REACTIONS (3)
  - ALOPECIA [None]
  - DIARRHOEA [None]
  - NAUSEA [None]
